FAERS Safety Report 6337774-9 (Version None)
Quarter: 2009Q3

REPORT INFORMATION
  Report Type: 
  Country: None (occurrence: None)
  Receive Date: 20090902
  Receipt Date: 20090901
  Transmission Date: 20100115
  Serious: Yes (Other)
  Sender: FDA-Public Use
  Company Number: A0800644A

PATIENT
  Age: 47 Year
  Sex: Female

DRUGS (1)
  1. ALLI [Suspect]
     Route: 048
     Dates: start: 20090626, end: 20090707

REACTIONS (7)
  - BLOOD URINE PRESENT [None]
  - DIARRHOEA [None]
  - DYSURIA [None]
  - FLANK PAIN [None]
  - GROIN PAIN [None]
  - NEPHROLITHIASIS [None]
  - RECTAL DISCHARGE [None]
